FAERS Safety Report 9461211 (Version 1)
Quarter: 2013Q3

REPORT INFORMATION
  Report Type: Spontaneous
  Country: US (occurrence: None)
  Receive Date: 20130814
  Receipt Date: 20130814
  Transmission Date: 20140515
  Serious: Yes (Hospitalization)
  Sender: FDA-Public Use
  Company Number: None

PATIENT
  Age: 63 Year
  Sex: Male
  Weight: 98.43 kg

DRUGS (11)
  1. TOPROL XL [Suspect]
  2. CRESTOR [Concomitant]
  3. LEVOXYL [Concomitant]
  4. METFORMIN HCL [Concomitant]
  5. GLIPIZIDE [Concomitant]
  6. JANUVIA [Concomitant]
  7. PLAVIX [Concomitant]
  8. MICARDIS [Concomitant]
  9. B 12 [Concomitant]
  10. VITAMINS [Concomitant]
  11. ASPIRIN 81MG [Concomitant]

REACTIONS (1)
  - Blood pressure inadequately controlled [None]
